FAERS Safety Report 8339378-5 (Version None)
Quarter: 2012Q2

REPORT INFORMATION
  Report Type: 
  Country: None (occurrence: None)
  Receive Date: 20120507
  Receipt Date: 20120502
  Transmission Date: 20120825
  Serious: Yes (Other)
  Sender: FDA-Public Use
  Company Number: US-SANOFI-AVENTIS-2012SA015141

PATIENT
  Age: 56 Year
  Sex: Female

DRUGS (4)
  1. LANTUS [Suspect]
     Dosage: DOSE:60 UNIT(S)
     Route: 058
     Dates: start: 20110101, end: 20120301
  2. SOLOSTAR [Suspect]
     Dates: start: 20110101, end: 20120301
  3. SOLOSTAR [Suspect]
     Dates: start: 20110101, end: 20120301
  4. APIDRA [Concomitant]
     Route: 058

REACTIONS (4)
  - PRODUCT QUALITY ISSUE [None]
  - ASTHENIA [None]
  - PAIN IN EXTREMITY [None]
  - NODULE [None]
